FAERS Safety Report 9807145 (Version 2)
Quarter: 2014Q1

REPORT INFORMATION
  Report Type: Spontaneous
  Country: FR (occurrence: FR)
  Receive Date: 20140110
  Receipt Date: 20140110
  Transmission Date: 20141002
  Serious: Yes (Other)
  Sender: FDA-Public Use
  Company Number: FR-ASTRAZENECA-2013SE89670

PATIENT
  Age: 11306 Day
  Sex: Female
  Weight: 135 kg

DRUGS (6)
  1. XEROQUEL [Suspect]
     Indication: BIPOLAR DISORDER
     Route: 048
     Dates: start: 201301
  2. XEROQUEL [Suspect]
     Indication: BIPOLAR DISORDER
     Route: 048
  3. TERCIAN [Suspect]
     Route: 065
     Dates: start: 201301
  4. SEROPRAM [Concomitant]
     Route: 048
  5. SERESTA [Concomitant]
     Route: 048
  6. TRILEPTAL [Concomitant]
     Dosage: 600 MG EVERY MORNING AND EVENING
     Route: 048

REACTIONS (4)
  - Meige^s syndrome [Recovering/Resolving]
  - Visual acuity reduced [Recovered/Resolved]
  - Sedation [Recovered/Resolved]
  - Exposure during pregnancy [Unknown]
